FAERS Safety Report 8446946-9 (Version None)
Quarter: 2012Q2

REPORT INFORMATION
  Report Type: 
  Country: None (occurrence: None)
  Receive Date: 20120613
  Receipt Date: 20120613
  Transmission Date: 20120825
  Serious: Yes (Other)
  Sender: FDA-Public Use
  Company Number: None

PATIENT
  Age: 82 Year
  Sex: Male
  Weight: 95.2554 kg

DRUGS (1)
  1. UROXATRAL 10 MG SANOFI10 [Suspect]
     Indication: BENIGN PROSTATIC HYPERPLASIA
     Dosage: 10 MG DAILY
     Dates: start: 20120220, end: 20120404

REACTIONS (6)
  - TONGUE DISORDER [None]
  - MENTAL IMPAIRMENT [None]
  - BALANCE DISORDER [None]
  - RAYNAUD'S PHENOMENON [None]
  - DIZZINESS [None]
  - FATIGUE [None]
